FAERS Safety Report 24879731 (Version 1)
Quarter: 2025Q1

REPORT INFORMATION
  Report Type: Spontaneous
  Country: FR (occurrence: FR)
  Receive Date: 20250123
  Receipt Date: 20250123
  Transmission Date: 20250409
  Serious: Yes (Hospitalization)
  Sender: FRESENIUS KABI
  Company Number: None

PATIENT
  Age: 20 Year
  Sex: Male
  Weight: 55 kg

DRUGS (7)
  1. FLUCONAZOLE [Suspect]
     Active Substance: FLUCONAZOLE
     Indication: Cryptococcal meningoencephalitis
     Route: 042
     Dates: start: 20241231, end: 20250110
  2. FLUCONAZOLE [Suspect]
     Active Substance: FLUCONAZOLE
     Indication: Cryptococcal meningoencephalitis
     Route: 048
     Dates: start: 20241129, end: 20241230
  3. IVERMECTIN [Concomitant]
     Active Substance: IVERMECTIN
     Indication: Parasitic infection prophylaxis
     Route: 048
     Dates: start: 20250106, end: 20250106
  4. METHYLPREDNISOLONE [Concomitant]
     Active Substance: METHYLPREDNISOLONE
     Indication: Cryptococcal meningoencephalitis
     Route: 042
     Dates: start: 20250107
  5. AMLODIPINE [Concomitant]
     Active Substance: AMLODIPINE BESYLATE
     Indication: Hypertension
     Route: 048
     Dates: start: 20250110
  6. MAG 2, powder for oral solution [Concomitant]
     Indication: Hypophosphataemia
     Route: 048
     Dates: start: 20250109
  7. PHOSPHONEUROS, drinkable solution in drops [Concomitant]
     Indication: Hypomagnesaemia
     Route: 048
     Dates: start: 20250109

REACTIONS (1)
  - Hepatic cytolysis [Recovering/Resolving]

NARRATIVE: CASE EVENT DATE: 20250111
